FAERS Safety Report 7528178-1 (Version None)
Quarter: 2011Q2

REPORT INFORMATION
  Report Type: 
  Country: None (occurrence: None)
  Receive Date: 20110607
  Receipt Date: 20101022
  Transmission Date: 20111010
  Serious: No
  Sender: FDA-Public Use
  Company Number: US-ASTRAZENECA-2010SE50148

PATIENT
  Age: 523 Month
  Sex: Female
  Weight: 59 kg

DRUGS (2)
  1. PRILOSEC [Suspect]
     Route: 048
     Dates: start: 20101015
  2. PRILOSEC [Suspect]
     Indication: GASTROOESOPHAGEAL REFLUX DISEASE
     Route: 048
     Dates: start: 20100927, end: 20100901

REACTIONS (3)
  - CHAPPED LIPS [None]
  - GLOSSODYNIA [None]
  - GASTROOESOPHAGEAL REFLUX DISEASE [None]
